FAERS Safety Report 4693613-3 (Version None)
Quarter: 2005Q2

REPORT INFORMATION
  Report Type: 
  Country: None (occurrence: None)
  Receive Date: 20050616
  Receipt Date: 20050608
  Transmission Date: 20051028
  Serious: Yes (Hospitalization)
  Sender: FDA-Public Use
  Company Number: HQWYE335509JUN05

PATIENT
  Age: 45 Year
  Sex: Female

DRUGS (3)
  1. ARTANE [Suspect]
     Indication: TREMOR
     Dosage: 6 MG 1X PER 1 DAY ORAL
     Route: 048
     Dates: start: 20050513, end: 20050531
  2. ZOLPIDEM TARTRATE [Concomitant]
  3. ESTAZOLAM [Concomitant]

REACTIONS (1)
  - DRUG ERUPTION [None]
